FAERS Safety Report 16071440 (Version 3)
Quarter: 2019Q3

REPORT INFORMATION
  Report Type: Spontaneous
  Country: US (occurrence: US)
  Receive Date: 20190314
  Receipt Date: 20190829
  Transmission Date: 20191004
  Serious: No
  Sender: FDA-Public Use
  Company Number: US-PFIZER INC-2019107409

PATIENT
  Age: 23 Year
  Sex: Male
  Weight: 74.84 kg

DRUGS (2)
  1. MIDAZOLAM [Suspect]
     Active Substance: MIDAZOLAM HYDROCHLORIDE
     Indication: SEDATION
     Dosage: 5 MG/ML, SINGLE (ONE TIME DOSE)
     Route: 042
     Dates: start: 20190218, end: 20190218
  2. FENTANYL. [Concomitant]
     Active Substance: FENTANYL
     Dosage: 50 UG/ML, SINGLE (ONE TIME DOSE)

REACTIONS (1)
  - Drug ineffective [Recovered/Resolved]

NARRATIVE: CASE EVENT DATE: 20190218
